FAERS Safety Report 10267562 (Version 1)
Quarter: 2014Q2

REPORT INFORMATION
  Report Type: Spontaneous
  Country: US (occurrence: None)
  Receive Date: 20140624
  Receipt Date: 20140624
  Transmission Date: 20141212
  Serious: Yes (Other)
  Sender: FDA-Public Use
  Company Number: 54973 AE#1542

PATIENT
  Age: 18 Month
  Sex: Female

DRUGS (1)
  1. HYLAND^S BABY TEETHING TABLETS [Suspect]
     Indication: TEETHING
     Dosage: 4 TABS QD PRN X 9 MOS

REACTIONS (2)
  - Convulsion [None]
  - Speech disorder developmental [None]
